FAERS Safety Report 6132596-6 (Version None)
Quarter: 2009Q1

REPORT INFORMATION
  Report Type: 
  Country: None (occurrence: None)
  Receive Date: 20090324
  Receipt Date: 20090310
  Transmission Date: 20090719
  Serious: Yes (Other)
  Sender: FDA-Public Use
  Company Number: 1000005392

PATIENT
  Age: 45 Year
  Sex: Female

DRUGS (2)
  1. ESCITALOPRAM OXALATE [Suspect]
     Indication: FIBROMYALGIA
     Dosage: 10 MG (10 MG, 1 IN 1 D), ORAL
     Route: 048
     Dates: start: 20090211, end: 20090214
  2. LEVOTHYROXINE (100 MICROGRAM, TABLETS) [Concomitant]

REACTIONS (4)
  - ANURIA [None]
  - EPISTAXIS [None]
  - OEDEMA PERIPHERAL [None]
  - RENAL FAILURE [None]
